FAERS Safety Report 4436683-X (Version None)
Quarter: 2004Q3

REPORT INFORMATION
  Report Type: 
  Country: None (occurrence: None)
  Receive Date: 20040830
  Receipt Date: 20040830
  Transmission Date: 20050211
  Serious: Yes (Life-Threatening, Disabling)
  Sender: FDA-Public Use
  Company Number: None

PATIENT
  Age: 53 Year
  Sex: Male
  Weight: 99.7913 kg

DRUGS (1)
  1. CRESTOR [Suspect]
     Indication: RHABDOMYOLYSIS
     Dosage: 10 MG DAILY
     Dates: start: 20031121, end: 20040618

REACTIONS (3)
  - LIVER DISORDER [None]
  - MUSCLE ATROPHY [None]
  - RHABDOMYOLYSIS [None]
